FAERS Safety Report 11412072 (Version 1)
Quarter: 2015Q3

REPORT INFORMATION
  Report Type: Spontaneous
  Country: US (occurrence: US)
  Receive Date: 20150821
  Receipt Date: 20150821
  Transmission Date: 20151125
  Serious: No
  Sender: FDA-Public Use
  Company Number: US-ELI_LILLY_AND_COMPANY-US201202000777

PATIENT
  Age: 63 Year
  Sex: Female

DRUGS (2)
  1. NOVOLOG [Concomitant]
     Active Substance: INSULIN ASPART
  2. HUMULIN R [Suspect]
     Active Substance: INSULIN HUMAN
     Indication: DIABETES MELLITUS
     Dosage: 60 U, TID

REACTIONS (4)
  - Dry mouth [Unknown]
  - Pruritus generalised [Unknown]
  - Dysgeusia [Unknown]
  - Rash [Unknown]
